FAERS Safety Report 25892631 (Version 1)
Quarter: 2025Q4

REPORT INFORMATION
  Report Type: Spontaneous
  Country: CH (occurrence: CH)
  Receive Date: 20251007
  Receipt Date: 20251007
  Transmission Date: 20260118
  Serious: Yes (Other)
  Sender: NOVO NORDISK
  Company Number: CH-NOVOPROD-1534414

PATIENT
  Sex: Female
  Weight: 3.75 kg

DRUGS (5)
  1. WEGOVY [Suspect]
     Active Substance: SEMAGLUTIDE
     Indication: Obesity
     Dosage: 0.25 MG, QW
     Route: 064
     Dates: start: 20241202, end: 20241216
  2. NATALBEN PLUS [Concomitant]
     Indication: Pregnancy
     Dosage: 1 CAPSULE PER DAY
     Route: 064
     Dates: start: 202501, end: 202508
  3. VENOFER [Concomitant]
     Active Substance: IRON SUCROSE
     Indication: Iron deficiency anaemia
     Dosage: 500 MG
     Route: 064
     Dates: start: 20250612
  4. VENOFER [Concomitant]
     Active Substance: IRON SUCROSE
     Dosage: 500 MG
     Route: 064
     Dates: start: 20250703
  5. DEQUALINIUM CHLORIDE [Concomitant]
     Active Substance: DEQUALINIUM CHLORIDE
     Indication: Bacterial vaginosis
     Dosage: UNK
     Route: 064
     Dates: start: 20250703, end: 20250708

REACTIONS (2)
  - Tachycardia foetal [Recovered/Resolved]
  - Foetal exposure during pregnancy [Recovered/Resolved]

NARRATIVE: CASE EVENT DATE: 20241202
